FAERS Safety Report 6122655-6 (Version None)
Quarter: 2009Q1

REPORT INFORMATION
  Report Type: 
  Country: None (occurrence: None)
  Receive Date: 20090318
  Receipt Date: 20090306
  Transmission Date: 20090719
  Serious: Yes (Other)
  Sender: FDA-Public Use
  Company Number: PHHY2009CH08799

PATIENT
  Sex: Male

DRUGS (2)
  1. SANDIMMUNE [Suspect]
     Indication: NEURODERMATITIS
  2. CORTICOSTEROID NOS [Concomitant]
     Indication: NEURODERMATITIS

REACTIONS (1)
  - POLYARTHRITIS [None]
